FAERS Safety Report 16386665 (Version 2)
Quarter: 2019Q2

REPORT INFORMATION
  Report Type: Spontaneous
  Country: VN (occurrence: VN)
  Receive Date: 20190604
  Receipt Date: 20190619
  Transmission Date: 20190711
  Serious: Yes (Hospitalization, Other)
  Sender: FDA-Public Use
  Company Number: VN-009507513-1906VNM000027

PATIENT
  Sex: Male
  Weight: 57 kg

DRUGS (3)
  1. PEMETREXED DISODIUM [Concomitant]
     Active Substance: PEMETREXED DISODIUM
     Indication: NON-SMALL CELL LUNG CANCER STAGE IV
     Dosage: ROUTE: TTM, 500 MILLIGRAM PER SQ. METER SKIN
  2. CARBOPLATIN. [Concomitant]
     Active Substance: CARBOPLATIN
     Indication: NON-SMALL CELL LUNG CANCER STAGE IV
     Dosage: ROUTE: TTM, DOSE: AREA UNDER THE CURVE (AUC) 5
  3. KEYTRUDA [Suspect]
     Active Substance: PEMBROLIZUMAB
     Indication: NON-SMALL CELL LUNG CANCER
     Dosage: ROUTE: TTM,200 MILLIGRAM, EVERY 3 WEEKS FOR 19 CYCLES. INTERRUPTED 2 CYCLES THEN ONE MORE CYCLES TRE
     Dates: start: 20171114, end: 20190221

REACTIONS (1)
  - Haemophagocytic lymphohistiocytosis [Recovered/Resolved]

NARRATIVE: CASE EVENT DATE: 2017
